FAERS Safety Report 9364476 (Version 2)
Quarter: 2013Q3

REPORT INFORMATION
  Report Type: Spontaneous
  Country: JP (occurrence: JP)
  Receive Date: 20130624
  Receipt Date: 20130718
  Transmission Date: 20140515
  Serious: Yes (Hospitalization)
  Sender: FDA-Public Use
  Company Number: JP-PFIZER INC-2013185655

PATIENT
  Age: 53 Year
  Sex: Male

DRUGS (10)
  1. GEMCITABINE HYDROCHLORIDE [Suspect]
     Indication: MALIGNANT NEOPLASM OF RENAL PELVIS
     Dosage: 1780 MG/BODY, DAY 1
     Route: 041
  2. METHOTREXATE SODIUM [Suspect]
     Indication: MALIGNANT NEOPLASM OF RENAL PELVIS
     Dosage: 40 MG/BODY, DAYS 1, 15, AND 22
  3. VINBLASTINE [Suspect]
     Indication: MALIGNANT NEOPLASM OF RENAL PELVIS
     Dosage: 4 MG/BODY, DAYS 2, 15, AND 22
     Route: 065
  4. ADRIACIN [Concomitant]
     Indication: MALIGNANT NEOPLASM OF RENAL PELVIS
     Dosage: 40 MG/BODY, DAY 2
  5. ADRIACIN [Concomitant]
     Dosage: 25 MG/BODY, DAY 1
  6. FLUOROURACIL [Concomitant]
     Indication: MALIGNANT NEOPLASM OF RENAL PELVIS
     Dosage: 1350 MG/BODY, DAYS 1-3
     Route: 042
  7. CISPLATIN [Concomitant]
     Indication: MALIGNANT NEOPLASM OF RENAL PELVIS
     Dosage: 90 MG/BODY, DAY 2
  8. CISPLATIN [Concomitant]
     Dosage: 35 MG/BODY, DAYS 1-5
  9. CARBOPLATIN [Concomitant]
     Indication: MALIGNANT NEOPLASM OF RENAL PELVIS
     Dosage: 460 MG/BODY, DAY 1
  10. IFOSFAMIDE [Concomitant]
     Indication: MALIGNANT NEOPLASM OF RENAL PELVIS
     Dosage: 3.6 G/BODY, DAYS 1-3

REACTIONS (1)
  - Aspergillus infection [Recovering/Resolving]
